FAERS Safety Report 6062981-2 (Version None)
Quarter: 2009Q1

REPORT INFORMATION
  Report Type: 
  Country: None (occurrence: None)
  Receive Date: 20090203
  Receipt Date: 20090127
  Transmission Date: 20090719
  Serious: Yes (Hospitalization, Disabling)
  Sender: FDA-Public Use
  Company Number: B0553793A

PATIENT
  Age: 59 Year
  Sex: Male

DRUGS (16)
  1. WELLBUTRIN XR [Suspect]
     Indication: DEPRESSION
     Dosage: 150MG IN THE MORNING
     Route: 048
     Dates: start: 20081001, end: 20081101
  2. GLUCOPHAGE [Concomitant]
     Dosage: 850MG TWICE PER DAY
     Route: 048
     Dates: start: 20080907
  3. LIPITOR [Concomitant]
     Dosage: 20MG IN THE MORNING
     Route: 048
     Dates: start: 20080907
  4. CARDIO-ASPIRINE [Concomitant]
     Dosage: 100MG IN THE MORNING
     Route: 048
     Dates: start: 20080907
  5. EFFEXOR [Concomitant]
     Dosage: 75MG TWICE PER DAY
  6. ALDACTAZINE [Concomitant]
     Route: 048
     Dates: start: 20080907
  7. NEXIUM [Concomitant]
     Dosage: 20MG PER DAY
     Route: 048
     Dates: start: 20080907
  8. RAMIPRIL [Concomitant]
     Dosage: 10MG IN THE MORNING
     Route: 048
     Dates: start: 20080907
  9. STAURODORM [Concomitant]
     Route: 048
     Dates: start: 20080907
  10. SEROQUEL [Concomitant]
     Indication: DRUG USE FOR UNKNOWN INDICATION
     Dosage: 200MG SEE DOSAGE TEXT
     Dates: start: 20080916
  11. EZETROL [Concomitant]
     Dosage: 10MG IN THE MORNING
     Route: 048
     Dates: start: 20080907
  12. ZYLORIC [Concomitant]
     Dosage: 300MG IN THE MORNING
     Route: 048
     Dates: start: 20080907
  13. ABILIFY [Concomitant]
     Dosage: 10MG PER DAY
     Route: 048
     Dates: start: 20080907
  14. KREDEX [Concomitant]
  15. LASIX [Concomitant]
     Dosage: 40MG PER DAY
  16. CYMBALTA [Concomitant]

REACTIONS (15)
  - BLOOD ALKALINE PHOSPHATASE INCREASED [None]
  - BLOOD FIBRINOGEN INCREASED [None]
  - BLOOD GLUCOSE INCREASED [None]
  - BLOOD TRIGLYCERIDES INCREASED [None]
  - BLOOD UREA INCREASED [None]
  - CARDIAC DISORDER [None]
  - CARDIAC FAILURE [None]
  - CHEST PAIN [None]
  - DYSPNOEA [None]
  - GAMMA-GLUTAMYLTRANSFERASE INCREASED [None]
  - ISCHAEMIC CARDIOMYOPATHY [None]
  - LEFT VENTRICULAR DYSFUNCTION [None]
  - VASCULAR GRAFT OCCLUSION [None]
  - VENTRICULAR EXTRASYSTOLES [None]
  - WHITE BLOOD CELL COUNT INCREASED [None]
